FAERS Safety Report 7120147-9 (Version None)
Quarter: 2010Q4

REPORT INFORMATION
  Report Type: 
  Country: None (occurrence: None)
  Receive Date: 20101123
  Receipt Date: 20101116
  Transmission Date: 20110411
  Serious: Yes (Death, Hospitalization, Other)
  Sender: FDA-Public Use
  Company Number: US-AMGEN GMBH-QUU424623

PATIENT

DRUGS (13)
  1. NPLATE [Suspect]
     Indication: IDIOPATHIC THROMBOCYTOPENIC PURPURA
     Dosage: 380 A?G, QWK
     Dates: start: 20100623, end: 20100714
  2. NPLATE [Suspect]
     Dates: start: 20100623, end: 20100714
  3. NPLATE [Suspect]
     Dates: start: 20100623, end: 20100714
  4. CORTICOSTEROID NOS [Concomitant]
  5. PREDNISONE [Concomitant]
  6. PROCRIT [Concomitant]
     Dosage: UNK UNK, UNK
     Dates: start: 20100101
  7. INSULIN GLARGINE [Concomitant]
  8. LEVOTHYROXINE SODIUM [Concomitant]
  9. METOPROLOL [Concomitant]
  10. FAMOTIDINE [Concomitant]
  11. CALCIUM [Concomitant]
  12. ERGOCALCIFEROL [Concomitant]
  13. OXYCODONE HCL [Concomitant]
     Dosage: UNK UNK, PRN

REACTIONS (9)
  - ACUTE MYELOID LEUKAEMIA [None]
  - DRUG INEFFECTIVE [None]
  - DYSPNOEA [None]
  - FLUSHING [None]
  - HYPERSENSITIVITY [None]
  - INFECTION [None]
  - LEUKAEMIA [None]
  - MUSCLE SPASMS [None]
  - PRURITUS [None]
